FAERS Safety Report 7207237-7 (Version None)
Quarter: 2011Q1

REPORT INFORMATION
  Report Type: 
  Country: None (occurrence: None)
  Receive Date: 20110103
  Receipt Date: 20101223
  Transmission Date: 20110831
  Serious: Yes (Other)
  Sender: FDA-Public Use
  Company Number: US-ROCHE-750382

PATIENT
  Sex: Male
  Weight: 97.7 kg

DRUGS (3)
  1. KEPPRA [Concomitant]
  2. ZOFRAN [Concomitant]
  3. ACCUTANE [Suspect]
     Indication: BRAIN NEOPLASM MALIGNANT
     Dosage: DOSE: 40 MG/20 MG
     Route: 048
     Dates: start: 20101001

REACTIONS (2)
  - PAIN [None]
  - DRUG INEFFECTIVE [None]
